FAERS Safety Report 10948772 (Version 7)
Quarter: 2015Q4

REPORT INFORMATION
  Report Type: Spontaneous
  Country: UA (occurrence: UA)
  Receive Date: 20150324
  Receipt Date: 20151112
  Transmission Date: 20160304
  Serious: Yes (Other)
  Sender: FDA-Public Use
  Company Number: UA-SA-2015SA030425

PATIENT
  Age: 24 Year
  Sex: Female
  Weight: 73 kg

DRUGS (3)
  1. CEREZYME [Suspect]
     Active Substance: IMIGLUCERASE
     Indication: GAUCHER^S DISEASE
     Dosage: DOSE:30 UNIT(S)/KILOGRAM BODYWEIGHT
     Route: 041
     Dates: start: 201312
  2. CEREZYME [Suspect]
     Active Substance: IMIGLUCERASE
     Indication: GAUCHER^S DISEASE
     Dosage: DOSE:60 UNIT(S)/KILOGRAM BODYWEIGHT
     Route: 041
  3. CEREZYME [Suspect]
     Active Substance: IMIGLUCERASE
     Indication: GAUCHER^S DISEASE
     Dosage: DOSE:60 UNIT(S)/KILOGRAM BODYWEIGHT
     Route: 041
     Dates: start: 2006, end: 2010

REACTIONS (15)
  - Portal hypertension [Unknown]
  - Gingival bleeding [Unknown]
  - Aspartate aminotransferase increased [Unknown]
  - Pancreatic disorder [Unknown]
  - Cholelithiasis [Unknown]
  - Exposure during pregnancy [Unknown]
  - Blood cholesterol increased [Unknown]
  - Splenomegaly [Unknown]
  - Bone pain [Recovering/Resolving]
  - Osteopenia [Unknown]
  - Thrombocytopenia [Unknown]
  - Cholecystitis chronic [Unknown]
  - Hepatomegaly [Unknown]
  - Alanine aminotransferase increased [Unknown]
  - Exposure during breast feeding [Unknown]

NARRATIVE: CASE EVENT DATE: 20141219
